FAERS Safety Report 5883499-3 (Version None)
Quarter: 2008Q3

REPORT INFORMATION
  Report Type: 
  Country: None (occurrence: None)
  Receive Date: 20080915
  Receipt Date: 20080909
  Transmission Date: 20090109
  Serious: Yes (Hospitalization)
  Sender: FDA-Public Use
  Company Number: PHHY2008DE10818

PATIENT
  Sex: Male
  Weight: 75 kg

DRUGS (11)
  1. EXFORGE [Suspect]
     Dosage: 160 MG VALSARTAN/10 MG AMLODIPINE/DAY
     Dates: end: 20080501
  2. EXFORGE [Suspect]
     Dosage: 80 MG VAL/5 MG AMLODIPIE/DAY
     Dates: start: 20080501
  3. EXFORGE [Suspect]
     Dosage: 80 MG VAL/5 MG AMLODIPIE/DAY
     Dates: start: 20080801
  4. DIOVAN HCT [Suspect]
     Indication: HYPERTENSION
     Dosage: 80/12.5 MG
     Dates: start: 20080630, end: 20080801
  5. HCT ^CT-ARZNEIMITTEL^ [Suspect]
     Dosage: 12.5 MG
  6. HCT ^CT-ARZNEIMITTEL^ [Suspect]
     Dosage: 6.25 MG
     Dates: end: 20080801
  7. RASILEZ [Concomitant]
     Dosage: 300 MG, QD
  8. ASS ^CT-ARZNEIMITTEL^ [Concomitant]
     Dosage: 1 DF, QD
  9. MOXONIDINE [Concomitant]
     Dosage: 1 DF, QD
  10. AMLODIPINE [Concomitant]
     Dosage: 1 DF, QD
  11. TORSEMIDE [Concomitant]

REACTIONS (8)
  - ASTHENIA [None]
  - BLOOD PRESSURE DECREASED [None]
  - COUGH [None]
  - DIZZINESS [None]
  - HYPERHIDROSIS [None]
  - HYPERTENSIVE CRISIS [None]
  - PARAESTHESIA [None]
  - PRURITUS GENERALISED [None]
